FAERS Safety Report 8812308 (Version 2)
Quarter: 2013Q2

REPORT INFORMATION
  Report Type: Spontaneous
  Country: US (occurrence: US)
  Receive Date: 20120927
  Receipt Date: 20130617
  Transmission Date: 20140414
  Serious: Yes (Hospitalization)
  Sender: FDA-Public Use
  Company Number: US-BAYER-2012-098422

PATIENT
  Age: 48 Year
  Sex: Female
  Weight: 68.03 kg

DRUGS (8)
  1. YAZ [Suspect]
     Dosage: UNK
     Dates: start: 200412, end: 20100831
  2. YASMIN [Suspect]
     Dosage: UNK
     Dates: start: 200412, end: 20100831
  3. MULTIVITAMINS [Concomitant]
  4. ALBUTEROL [Concomitant]
  5. FIORICET [Concomitant]
     Dosage: UNK UNK, PRN
  6. AZITHROMYCIN [Concomitant]
     Dosage: UNK
     Dates: start: 2007, end: 2010
  7. AUGMENTIN [Concomitant]
     Dosage: UNK
     Dates: start: 2006, end: 2012
  8. PEPCID [Concomitant]
     Indication: GASTROINTESTINAL DISORDER

REACTIONS (5)
  - Pulmonary thrombosis [None]
  - Injury [None]
  - Pain [None]
  - Dyspnoea [None]
  - Chest pain [None]
